FAERS Safety Report 11364589 (Version 4)
Quarter: 2015Q3

REPORT INFORMATION
  Report Type: Spontaneous
  Country: JP (occurrence: JP)
  Receive Date: 20150811
  Receipt Date: 20150921
  Transmission Date: 20151125
  Serious: Yes (Death, Other)
  Sender: FDA-Public Use
  Company Number: JP-GSKJP-JP2015JPN114351AA

PATIENT
  Age: 65 Year
  Sex: Male

DRUGS (2)
  1. ARZERRA [Suspect]
     Active Substance: OFATUMUMAB
     Dosage: 2000 MG, QD
     Route: 041
     Dates: start: 20150604, end: 20150604
  2. ARZERRA [Suspect]
     Active Substance: OFATUMUMAB
     Indication: CHRONIC LYMPHOCYTIC LEUKAEMIA
     Dosage: UNK, QD
     Route: 041
     Dates: start: 20130813, end: 20130813

REACTIONS (3)
  - Pneumonia [Fatal]
  - Infection [Fatal]
  - Disease progression [Fatal]

NARRATIVE: CASE EVENT DATE: 20140904
